FAERS Safety Report 11686374 (Version 2)
Quarter: 2015Q4

REPORT INFORMATION
  Report Type: Spontaneous
  Country: IT (occurrence: IT)
  Receive Date: 20151030
  Receipt Date: 20151221
  Transmission Date: 20160304
  Serious: Yes (Hospitalization)
  Sender: FDA-Public Use
  Company Number: IT-SA-2015SA169464

PATIENT
  Age: 83 Year
  Sex: Female

DRUGS (5)
  1. LASIX [Suspect]
     Active Substance: FUROSEMIDE
     Dosage: 25 MG
     Route: 065
  2. DIGOXIN. [Suspect]
     Active Substance: DIGOXIN
     Route: 065
  3. DILATREND [Concomitant]
     Active Substance: CARVEDILOL
     Dosage: STRENGTH: 6.25 MG
  4. PRADAXA [Suspect]
     Active Substance: DABIGATRAN ETEXILATE MESYLATE
     Indication: ATRIAL FIBRILLATION
     Route: 048
     Dates: start: 20150601, end: 20151006
  5. RAMIPRIL. [Concomitant]
     Active Substance: RAMIPRIL
     Dosage: STRENGTH: 2.5 MG

REACTIONS (2)
  - Jaundice [Recovering/Resolving]
  - Hepatitis acute [Recovering/Resolving]

NARRATIVE: CASE EVENT DATE: 20151006
